FAERS Safety Report 5196106-2 (Version None)
Quarter: 2006Q4

REPORT INFORMATION
  Report Type: 
  Country: None (occurrence: None)
  Receive Date: 20061226
  Receipt Date: 20061212
  Transmission Date: 20070319
  Serious: Yes (Other)
  Sender: FDA-Public Use
  Company Number: NLWYE808912DEC06

PATIENT
  Age: 35 Year
  Sex: Female

DRUGS (2)
  1. EFFEXOR XR [Suspect]
     Indication: DEPRESSION
     Dosage: 75 MG 2X PER 1 DAY  FOR YEARS
  2. MICROGYNON (ETHINYLESTRADIOL/LEVONORGESTREL) [Suspect]
     Indication: ORAL CONTRACEPTION
     Dates: start: 20060801

REACTIONS (2)
  - DRUG EXPOSURE DURING PREGNANCY [None]
  - DRUG INTERACTION [None]
